FAERS Safety Report 8023503 (Version 10)
Quarter: 2013Q3

REPORT INFORMATION
  Report Type: Spontaneous
  Country: US (occurrence: US)
  Receive Date: 20110706
  Receipt Date: 20130726
  Transmission Date: 20140515
  Serious: Yes (Hospitalization, Other)
  Sender: FDA-Public Use
  Company Number: US-ROCHE-786671

PATIENT
  Age: 53 Year
  Sex: Male
  Weight: 62.65 kg

DRUGS (1)
  1. ACCUTANE [Suspect]
     Indication: ACNE
     Route: 065
     Dates: start: 19950210, end: 19960210

REACTIONS (11)
  - Colitis ulcerative [Unknown]
  - Suicide attempt [Unknown]
  - Bipolar disorder [Unknown]
  - Emotional distress [Not Recovered/Not Resolved]
  - Injury [Unknown]
  - Inflammatory bowel disease [Unknown]
  - Intestinal haemorrhage [Unknown]
  - Pouchitis [Unknown]
  - Depression [Unknown]
  - Irritable bowel syndrome [Unknown]
  - Arthritis [Unknown]
